FAERS Safety Report 8042783-8 (Version None)
Quarter: 2012Q1

REPORT INFORMATION
  Report Type: 
  Country: None (occurrence: None)
  Receive Date: 20120112
  Receipt Date: 20120106
  Transmission Date: 20120608
  Serious: Yes (Hospitalization, Other)
  Sender: FDA-Public Use
  Company Number: GB-ROCHE-791339

PATIENT
  Sex: Male

DRUGS (4)
  1. MABTHERA [Suspect]
     Indication: RHEUMATOID ARTHRITIS
     Route: 065
  2. RAMIPRIL [Concomitant]
  3. PREDNISOLONE [Concomitant]
     Dosage: LONG TERM
  4. AZULFIDINE [Concomitant]

REACTIONS (7)
  - PANCYTOPENIA [None]
  - HYPERTENSION [None]
  - SYNCOPE [None]
  - MACROCYTOSIS [None]
  - DYSPNOEA [None]
  - PYREXIA [None]
  - SEPSIS [None]
